FAERS Safety Report 5239802-0 (Version None)
Quarter: 2007Q1

REPORT INFORMATION
  Report Type: 
  Country: None (occurrence: None)
  Receive Date: 20070216
  Receipt Date: 20070208
  Transmission Date: 20070707
  Serious: Yes (Other)
  Sender: FDA-Public Use
  Company Number: JP-ELI_LILLY_AND_COMPANY-JP200702002349

PATIENT
  Age: 52 Year
  Sex: Male

DRUGS (1)
  1. GEMCITABINE HCL [Suspect]
     Indication: PANCREATIC CARCINOMA
     Dosage: 1000 MG/M2, OTHER
     Route: 042
     Dates: start: 20050801, end: 20060501

REACTIONS (10)
  - BILIARY TRACT INFECTION [None]
  - BILOMA [None]
  - CENTRAL LINE INFECTION [None]
  - CHOLANGITIS [None]
  - DUODENAL STENOSIS [None]
  - ILEUS [None]
  - JAUNDICE CHOLESTATIC [None]
  - LUNG ABSCESS [None]
  - PERITONITIS [None]
  - SEPSIS [None]
